FAERS Safety Report 19954435 (Version 1)
Quarter: 2021Q4

REPORT INFORMATION
  Report Type: Spontaneous
  Country: JP (occurrence: JP)
  Receive Date: 20211013
  Receipt Date: 20211013
  Transmission Date: 20220303
  Serious: Yes (Hospitalization)
  Sender: FDA-Public Use
  Company Number: JP-NAPPMUNDI-GBR-2021-0089454

PATIENT
  Age: 79 Year
  Sex: Female

DRUGS (1)
  1. NORSPAN [Suspect]
     Active Substance: BUPRENORPHINE
     Indication: Product used for unknown indication
     Dosage: 5 MCG, Q1H
     Route: 062

REACTIONS (4)
  - Feeling abnormal [Unknown]
  - Yawning [Unknown]
  - Chills [Unknown]
  - Cold sweat [Unknown]
